FAERS Safety Report 23146334 (Version 2)
Quarter: 2023Q4

REPORT INFORMATION
  Report Type: Spontaneous
  Country: US (occurrence: US)
  Receive Date: 20231104
  Receipt Date: 20231121
  Transmission Date: 20240109
  Serious: No
  Sender: FDA-Public Use
  Company Number: US-LUPIN PHARMACEUTICALS INC.-2023-09677

PATIENT

DRUGS (2)
  1. ALBUTEROL SULFATE [Suspect]
     Active Substance: ALBUTEROL SULFATE
     Indication: Asthma
     Dosage: UNK, QD, (2-4 PUFFS A DAY)
     Dates: start: 202301
  2. ALBUTEROL SULFATE [Suspect]
     Active Substance: ALBUTEROL SULFATE
     Indication: Lung disorder
     Dosage: UNK, QD (2-4 PUFFS A DAY)
     Dates: start: 202310

REACTIONS (7)
  - Dyspnoea [Unknown]
  - Drug dose omission by device [Unknown]
  - Wrong technique in device usage process [Unknown]
  - Device deposit issue [Unknown]
  - Incorrect dose administered by device [Unknown]
  - Off label use [Unknown]
  - Exposure during pregnancy [Unknown]
